FAERS Safety Report 7469310-8 (Version None)
Quarter: 2011Q2

REPORT INFORMATION
  Report Type: 
  Country: None (occurrence: None)
  Receive Date: 20110429
  Receipt Date: 20110414
  Transmission Date: 20111010
  Serious: Yes (Death)
  Sender: FDA-Public Use
  Company Number: US-2011-10089

PATIENT
  Sex: Female

DRUGS (1)
  1. SAMCA (TOLVAPTAN) TABLET [Suspect]

REACTIONS (2)
  - UNEVALUABLE EVENT [None]
  - MYOCARDIAL INFARCTION [None]
